FAERS Safety Report 14097634 (Version 2)
Quarter: 2017Q4

REPORT INFORMATION
  Report Type: Spontaneous
  Country: US (occurrence: US)
  Receive Date: 20171017
  Receipt Date: 20171202
  Transmission Date: 20180321
  Serious: No
  Sender: FDA-Public Use
  Company Number: US-ASTRAZENECA-2017SF04809

PATIENT
  Sex: Female
  Weight: 64.4 kg

DRUGS (2)
  1. PULMICORT FLEXHALER [Suspect]
     Active Substance: BUDESONIDE
     Indication: ASTHMA
     Dosage: AS REQUIRED
     Route: 055
  2. PULMICORT FLEXHALER [Suspect]
     Active Substance: BUDESONIDE
     Indication: ASTHMA
     Dosage: 2.0DF AS REQUIRED
     Route: 055

REACTIONS (5)
  - Product taste abnormal [Unknown]
  - Visual impairment [Unknown]
  - Device issue [Unknown]
  - Off label use [Unknown]
  - Sleep disorder [Unknown]
